FAERS Safety Report 5898177-4 (Version None)
Quarter: 2008Q3

REPORT INFORMATION
  Report Type: 
  Country: None (occurrence: None)
  Receive Date: 20080925
  Receipt Date: 20080922
  Transmission Date: 20090109
  Serious: Yes (Hospitalization, Disabling)
  Sender: FDA-Public Use
  Company Number: US-MERCK-0809USA03875

PATIENT
  Age: 82 Year
  Sex: Female

DRUGS (2)
  1. FOSAMAX PLUS D [Suspect]
     Indication: OSTEOPOROSIS
     Route: 048
     Dates: start: 20060901
  2. FOSAMAX [Suspect]
     Route: 048
     Dates: start: 19990719, end: 20060901

REACTIONS (3)
  - FEMUR FRACTURE [None]
  - FRACTURE [None]
  - HIP FRACTURE [None]
